FAERS Safety Report 17288987 (Version 1)
Quarter: 2020Q1

REPORT INFORMATION
  Report Type: Spontaneous
  Country: TR (occurrence: TR)
  Receive Date: 20200120
  Receipt Date: 20200120
  Transmission Date: 20200409
  Serious: Yes (Life-Threatening, Hospitalization, Other)
  Sender: FDA-Public Use
  Company Number: TR-IPCA LABORATORIES LIMITED-IPC-2020-TR-000123

PATIENT

DRUGS (9)
  1. CLARITHROMYCIN TABLETS [Suspect]
     Active Substance: CLARITHROMYCIN
     Indication: PNEUMONIA
     Dosage: 500 MILLIGRAM, BID
     Route: 065
  2. CORASPIN [Concomitant]
     Active Substance: ASPIRIN
     Indication: ARRHYTHMIA
  3. WARFARIN [Suspect]
     Active Substance: WARFARIN
     Indication: CHRONIC OBSTRUCTIVE PULMONARY DISEASE
  4. CORASPIN [Concomitant]
     Active Substance: ASPIRIN
     Indication: CORONARY ARTERY DISEASE
     Dosage: 100 MILLIGRAM
     Route: 065
  5. CORASPIN [Concomitant]
     Active Substance: ASPIRIN
     Indication: HYPERTENSION
  6. WARFARIN [Suspect]
     Active Substance: WARFARIN
     Indication: ARRHYTHMIA
  7. WARFARIN [Suspect]
     Active Substance: WARFARIN
     Indication: HYPERTENSION
  8. WARFARIN [Suspect]
     Active Substance: WARFARIN
     Indication: CORONARY ARTERY DISEASE
     Dosage: UNK
     Route: 065
  9. CORASPIN [Concomitant]
     Active Substance: ASPIRIN
     Indication: CHRONIC OBSTRUCTIVE PULMONARY DISEASE

REACTIONS (4)
  - Overdose [Unknown]
  - Haematoma [Recovered/Resolved]
  - International normalised ratio increased [Recovered/Resolved]
  - Urinary bladder rupture [Recovered/Resolved]
